FAERS Safety Report 10168623 (Version 1)
Quarter: 2014Q2

REPORT INFORMATION
  Report Type: Spontaneous
  Country: US (occurrence: None)
  Receive Date: 20140410
  Receipt Date: 20140410
  Transmission Date: 20141212
  Serious: Yes (Other)
  Sender: FDA-Public Use
  Company Number: 1878984

PATIENT
  Age: 81 Year
  Sex: Male
  Weight: 100 kg

DRUGS (1)
  1. AMINOCAPROIC ACID [Suspect]
     Indication: HAEMORRHAGE
     Dosage: 5 G/20ML
     Route: 042
     Dates: start: 20130828

REACTIONS (3)
  - Hypotension [None]
  - Erythema [None]
  - Rash [None]
